FAERS Safety Report 8993584 (Version 3)
Quarter: 2013Q1

REPORT INFORMATION
  Report Type: Other
  Country: DK (occurrence: DK)
  Receive Date: 20130102
  Receipt Date: 20130122
  Transmission Date: 20140127
  Serious: Yes (Other)
  Sender: FDA-Public Use
  Company Number: GB-ARROW-2012-22738

PATIENT
  Age: 36 Year
  Sex: Female

DRUGS (8)
  1. METFORMIN HYDROCHLORIDE (UNKNOWN) [Suspect]
     Indication: TYPE 2 DIABETES MELLITUS
     Dosage: 500 MG, BID  TRIMEMESTER 1
     Route: 048
     Dates: start: 2005
  2. SIMVASTATIN (UNKNOWN) [Suspect]
     Indication: CHOLESTEROSIS
     Dosage: 40 MG, DAILY QD
     Route: 048
     Dates: start: 2006
  3. VANIQA [Suspect]
     Indication: HIRSUTISM
     Dosage: 1 DF, BID
     Route: 061
     Dates: start: 20121015
  4. VANIQA [Suspect]
     Dosage: 1 DF, BID
     Route: 061
     Dates: start: 20120528, end: 20121003
  5. SPIRIX [Suspect]
     Indication: HORMONE THERAPY
     Dosage: 100 MG, DAILY
     Route: 048
     Dates: start: 2011
  6. HJERTEMAGNYL [Suspect]
     Indication: THROMBOSIS PROPHYLAXIS
     Dosage: 75 MG, DAILY  QD
     Route: 048
     Dates: start: 2006
  7. YASMIN [Suspect]
     Indication: CONTRACEPTION
     Dosage: 1 DF, DAILY
     Route: 048
     Dates: start: 2009
  8. PINEX                              /00020001/ [Suspect]
     Indication: PAIN
     Dosage: 1 G, BID
     Route: 048
     Dates: start: 2009

REACTIONS (3)
  - Abortion spontaneous [Unknown]
  - Unintended pregnancy [Unknown]
  - Maternal exposure during pregnancy [Unknown]
